FAERS Safety Report 22216256 (Version 1)
Quarter: 2023Q2

REPORT INFORMATION
  Report Type: Spontaneous
  Country: GB (occurrence: GB)
  Receive Date: 20230417
  Receipt Date: 20230417
  Transmission Date: 20230722
  Serious: Yes (Other)
  Sender: FDA-Public Use
  Company Number: GB-AMGEN-GBRSP2023063054

PATIENT

DRUGS (5)
  1. ADALIMUMAB [Suspect]
     Active Substance: ADALIMUMAB
     Indication: Juvenile idiopathic arthritis
     Route: 065
  2. ADALIMUMAB [Suspect]
     Active Substance: ADALIMUMAB
     Indication: Uveitis
  3. ADALIMUMAB [Suspect]
     Active Substance: ADALIMUMAB
     Indication: Blau syndrome
  4. ADALIMUMAB [Suspect]
     Active Substance: ADALIMUMAB
     Indication: Dermatomyositis
  5. ADALIMUMAB [Suspect]
     Active Substance: ADALIMUMAB
     Indication: Takayasu^s arteritis

REACTIONS (11)
  - Juvenile idiopathic arthritis [Unknown]
  - Takayasu^s arteritis [Unknown]
  - Dermatomyositis [Unknown]
  - Uveitis [Unknown]
  - Therapeutic product effect decreased [Unknown]
  - Blau syndrome [Unknown]
  - Mouth ulceration [Unknown]
  - Off label use [Unknown]
  - Dermatitis psoriasiform [Unknown]
  - Adverse event [Unknown]
  - Injection site reaction [Unknown]
